FAERS Safety Report 9991209 (Version 1)
Quarter: 2014Q1

REPORT INFORMATION
  Report Type: Report from Study
  Country: US (occurrence: US)
  Receive Date: 20140310
  Receipt Date: 20140310
  Transmission Date: 20141002
  Serious: No
  Sender: FDA-Public Use
  Company Number: US-ABBVIE-13P-163-1133928-00

PATIENT
  Age: 55 Year
  Sex: Female

DRUGS (13)
  1. HUMIRA [Suspect]
     Indication: RHEUMATOID ARTHRITIS
     Route: 058
     Dates: start: 20130603
  2. PLAQUENIL [Concomitant]
     Indication: PSORIASIS
     Route: 048
  3. FOSAMAX [Concomitant]
     Indication: OSTEOPENIA
     Route: 048
  4. BACLOFEN [Concomitant]
     Indication: MUSCLE TWITCHING
     Route: 048
  5. BACLOFEN [Concomitant]
     Dosage: AT BEDTIME
  6. KLONOPIN [Concomitant]
     Indication: MUSCLE TWITCHING
     Route: 048
  7. CYMBALTA [Concomitant]
     Indication: COMPLEX REGIONAL PAIN SYNDROME
     Dosage: 60 MG DAILY
     Route: 048
  8. LISINOPRIL [Concomitant]
     Indication: RENAL DISORDER
  9. MAGNESIUM OXIDE [Concomitant]
     Indication: BLOOD MAGNESIUM DECREASED
     Route: 048
  10. METFORMIN ER [Concomitant]
     Indication: TYPE 2 DIABETES MELLITUS
     Route: 048
  11. OXYCODONE [Concomitant]
     Indication: BREAKTHROUGH PAIN
     Route: 048
  12. OXYCONTIN [Concomitant]
     Indication: PAIN
     Route: 048
  13. VENTOLIN [Concomitant]
     Indication: RESPIRATORY DISTRESS

REACTIONS (3)
  - Oropharyngeal pain [Not Recovered/Not Resolved]
  - Ear pain [Not Recovered/Not Resolved]
  - Multiple allergies [Not Recovered/Not Resolved]
